FAERS Safety Report 6158799-2 (Version None)
Quarter: 2009Q2

REPORT INFORMATION
  Report Type: 
  Country: None (occurrence: None)
  Receive Date: 20090417
  Receipt Date: 20090417
  Transmission Date: 20091009
  Serious: Yes (Life-Threatening, Hospitalization, Disabling)
  Sender: FDA-Public Use
  Company Number: PL-JNJFOC-20081000072

PATIENT
  Sex: Male
  Weight: 66.3 kg

DRUGS (3)
  1. PALIPERIDONE PALMITATE [Suspect]
     Route: 048
  2. PALIPERIDONE PALMITATE [Suspect]
     Route: 048
  3. PALIPERIDONE PALMITATE [Suspect]
     Indication: SCHIZOPHRENIA
     Route: 048

REACTIONS (3)
  - DELUSION [None]
  - SPINAL COMPRESSION FRACTURE [None]
  - SUICIDE ATTEMPT [None]
